FAERS Safety Report 6822302-1 (Version None)
Quarter: 2010Q3

REPORT INFORMATION
  Report Type: 
  Country: None (occurrence: None)
  Receive Date: 20100708
  Receipt Date: 20100607
  Transmission Date: 20110219
  Serious: No
  Sender: FDA-Public Use
  Company Number: US-BAYER-201016580BCC

PATIENT
  Age: 42 Year
  Sex: Female
  Weight: 61 kg

DRUGS (6)
  1. ALEVE (CAPLET) [Suspect]
     Indication: LIMB INJURY
     Dosage: AS USED: 220 MG  UNIT DOSE: 220 MG
     Route: 048
     Dates: start: 20100101, end: 20100512
  2. SYNTHROID [Concomitant]
     Route: 065
  3. CALTRATE [Concomitant]
     Route: 065
  4. CITRACAL [Concomitant]
     Route: 065
  5. SPRING VALLEY D3 [Concomitant]
     Route: 065
  6. GENERIC FOR DRISDOL VITAMIN D2 [Concomitant]

REACTIONS (1)
  - MENSTRUATION IRREGULAR [None]
